FAERS Safety Report 8577438 (Version 2)
Quarter: 2013Q1

REPORT INFORMATION
  Report Type: Spontaneous
  Country: IT (occurrence: IT)
  Receive Date: 20120524
  Receipt Date: 20130212
  Transmission Date: 20140127
  Serious: Yes (Other)
  Sender: FDA-Public Use
  Company Number: IT-JNJFOC-20120511400

PATIENT
  Age: 16 Year
  Sex: Male

DRUGS (4)
  1. RISPERDAL [Suspect]
     Indication: AGGRESSION
     Route: 048
     Dates: start: 20120502, end: 20120503
  2. RISPERDAL [Suspect]
     Indication: AGGRESSION
     Route: 048
  3. RISPERDAL [Suspect]
     Indication: AGITATION
     Route: 048
  4. RISPERDAL [Suspect]
     Indication: AGITATION
     Route: 048
     Dates: start: 20120502, end: 20120503

REACTIONS (5)
  - Dyskinesia [Recovered/Resolved]
  - Medication error [Recovered/Resolved]
  - Dystonia [Recovered/Resolved]
  - General physical health deterioration [Recovered/Resolved]
  - Incorrect dose administered [Recovered/Resolved]
